FAERS Safety Report 4902109-2 (Version None)
Quarter: 2006Q1

REPORT INFORMATION
  Report Type: 
  Country: None (occurrence: None)
  Receive Date: 20060206
  Receipt Date: 20051122
  Transmission Date: 20060701
  Serious: Yes (Hospitalization, Other)
  Sender: FDA-Public Use
  Company Number: BE-ABBOTT-05P-013-0318098-00

PATIENT
  Age: 62 Year
  Sex: Female

DRUGS (8)
  1. HUMIRA [Suspect]
     Indication: RHEUMATOID ARTHRITIS
     Route: 058
     Dates: start: 20040501
  2. METHOTREXATE SODIUM [Concomitant]
     Indication: DRUG USE FOR UNKNOWN INDICATION
  3. ANTI-TNF [Concomitant]
     Indication: DRUG USE FOR UNKNOWN INDICATION
  4. TENOXICAM [Concomitant]
     Indication: DRUG USE FOR UNKNOWN INDICATION
  5. RAMIPRIL [Concomitant]
     Indication: DRUG USE FOR UNKNOWN INDICATION
  6. METHYLPREDNISOLONE [Concomitant]
     Indication: RHEUMATOID ARTHRITIS
  7. SEROXAT [Concomitant]
     Indication: DEPRESSION
  8. COR UNO [Concomitant]
     Indication: ANGINA PECTORIS

REACTIONS (17)
  - ARTHRALGIA [None]
  - ASCITES [None]
  - BLOOD CREATININE INCREASED [None]
  - CLOSTRIDIAL INFECTION [None]
  - COLITIS [None]
  - CULTURE URINE POSITIVE [None]
  - DEPRESSION [None]
  - GASTRITIS HAEMORRHAGIC [None]
  - HAEMOLYTIC URAEMIC SYNDROME [None]
  - HIATUS HERNIA [None]
  - HYPERTENSION [None]
  - LARYNGEAL OEDEMA [None]
  - REFLUX OESOPHAGITIS [None]
  - SEPSIS [None]
  - SINUS TACHYCARDIA [None]
  - ULCER [None]
  - URINARY SEDIMENT PRESENT [None]
